FAERS Safety Report 18889241 (Version 1)
Quarter: 2021Q1

REPORT INFORMATION
  Report Type: Spontaneous
  Country: KR (occurrence: KR)
  Receive Date: 20210213
  Receipt Date: 20210213
  Transmission Date: 20210420
  Serious: Yes (Other)
  Sender: FDA-Public Use
  Company Number: KR-LEADINGPHARMA-KR-2021LEALIT00052

PATIENT
  Age: 59 Year
  Sex: Female

DRUGS (2)
  1. LORAZEPAM TABLETS USP [Suspect]
     Active Substance: LORAZEPAM
     Indication: SCHIZOPHRENIA
     Route: 065
  2. CLOZAPINE. [Suspect]
     Active Substance: CLOZAPINE
     Indication: SCHIZOPHRENIA
     Route: 065

REACTIONS (3)
  - Vision blurred [Unknown]
  - Electrocardiogram QT prolonged [Unknown]
  - Drug interaction [Unknown]
